FAERS Safety Report 20942617 (Version 1)
Quarter: 2022Q2

REPORT INFORMATION
  Report Type: Other
  Country: US (occurrence: None)
  Receive Date: 20220610
  Receipt Date: 20220610
  Transmission Date: 20220721
  Serious: Yes (Hospitalization)
  Sender: FDA-Public Use
  Company Number: US-ROCHE-1860518

PATIENT
  Sex: Male

DRUGS (6)
  1. RITUXAN [Suspect]
     Active Substance: RITUXIMAB
     Indication: Systemic lupus erythematosus
     Route: 042
  2. RITUXAN [Suspect]
     Active Substance: RITUXIMAB
     Indication: Polymyositis
     Route: 042
  3. RITUXAN [Suspect]
     Active Substance: RITUXIMAB
     Indication: Myopathy
     Route: 042
     Dates: start: 20160706
  4. RITUXAN [Suspect]
     Active Substance: RITUXIMAB
     Route: 042
     Dates: start: 20160803
  5. RITUXAN [Suspect]
     Active Substance: RITUXIMAB
     Dosage: ONGOING : NO
     Route: 042
     Dates: start: 20180529
  6. RITUXAN [Suspect]
     Active Substance: RITUXIMAB
     Dosage: INFUSE 1000 MG DAY 1 THEN DAY 15 THEN EVERY 6 MONTHS
     Route: 042

REACTIONS (5)
  - Malaise [Unknown]
  - Wagner^s disease [Unknown]
  - Pain [Unknown]
  - Off label use [Unknown]
  - Pneumonia [Recovered/Resolved]
